FAERS Safety Report 19062430 (Version 1)
Quarter: 2021Q1

REPORT INFORMATION
  Report Type: Spontaneous
  Country: US (occurrence: US)
  Receive Date: 20210326
  Receipt Date: 20210326
  Transmission Date: 20210420
  Serious: Yes (Other)
  Sender: FDA-Public Use
  Company Number: US-PFIZER INC-2021304632

PATIENT
  Age: 39 Year
  Sex: Male
  Weight: 79.83 kg

DRUGS (3)
  1. PHENYTOIN SODIUM. [Suspect]
     Active Substance: PHENYTOIN SODIUM
     Dosage: UNK
     Dates: start: 202101
  2. PHENYTOIN SODIUM. [Suspect]
     Active Substance: PHENYTOIN SODIUM
     Indication: SEIZURE
     Dosage: 200 MG, TWICE A DAY (IN THE MORNING AND AT NIGHT FOR A TOTAL OF 400 MG A DAY)
     Dates: start: 2000
  3. PHENYTOIN SODIUM. [Suspect]
     Active Substance: PHENYTOIN SODIUM
     Dosage: 500 MG, DAILY (200 MG IN THE MORNING AND 300 MG AT NIGHT)

REACTIONS (12)
  - Dysarthria [Unknown]
  - Balance disorder [Unknown]
  - Gait disturbance [Unknown]
  - Drug ineffective [Unknown]
  - Memory impairment [Unknown]
  - Fall [Unknown]
  - Disturbance in attention [Unknown]
  - Disorientation [Unknown]
  - Neoplasm recurrence [Unknown]
  - Weight decreased [Unknown]
  - Aggression [Unknown]
  - Feeling abnormal [Unknown]
